FAERS Safety Report 24293768 (Version 1)
Quarter: 2024Q3

REPORT INFORMATION
  Report Type: Spontaneous
  Country: US (occurrence: None)
  Receive Date: 20240906
  Receipt Date: 20240906
  Transmission Date: 20241017
  Serious: No
  Sender: DOMPE FARMACEUTICI
  Company Number: US-FARMAPROD-202402-0603

PATIENT
  Sex: Female

DRUGS (23)
  1. OXERVATE [Suspect]
     Active Substance: CENEGERMIN-BKBJ
     Indication: Neurotrophic keratopathy
     Route: 047
     Dates: start: 20240214
  2. OXERVATE [Suspect]
     Active Substance: CENEGERMIN-BKBJ
  3. OXERVATE [Suspect]
     Active Substance: CENEGERMIN-BKBJ
  4. ASPERCREME LIDOCAINE [Concomitant]
     Dosage: LIQUID ROLL-ON (ML)
  5. LUTEIN [Concomitant]
     Active Substance: LUTEIN
  6. CALCIUM [Concomitant]
     Active Substance: CALCIUM
     Dosage: 500 (1250)
  7. THIAMINE HYDROCHLORIDE [Concomitant]
     Active Substance: THIAMINE HYDROCHLORIDE
  8. MIRALAX [Concomitant]
     Active Substance: POLYETHYLENE GLYCOL 3350
     Dosage: 17 G/DOSE
  9. FISH OIL [Concomitant]
     Active Substance: FISH OIL
     Dosage: 100-160 MG
  10. MULTIVITAMIN 50 PLUS [Concomitant]
  11. IBUPROFEN [Concomitant]
     Active Substance: IBUPROFEN
  12. COLACE [Concomitant]
     Active Substance: DOCUSATE SODIUM
  13. MELATONIN [Concomitant]
     Active Substance: MELATONIN
  14. TYLENOL [Concomitant]
     Active Substance: ACETAMINOPHEN
  15. XIIDRA [Concomitant]
     Active Substance: LIFITEGRAST
  16. FLUOROMETHOLONE [Concomitant]
     Active Substance: FLUOROMETHOLONE
  17. THERA-D [Concomitant]
  18. PAROXETINE [Concomitant]
     Active Substance: PAROXETINE
     Dosage: EXTENDED RELEASE FOR 24 HOURS
  19. SIMVASTATIN [Concomitant]
     Active Substance: SIMVASTATIN
  20. MODAFINIL [Concomitant]
     Active Substance: MODAFINIL
  21. LEVO-T [Concomitant]
     Active Substance: LEVOTHYROXINE SODIUM
  22. CARBIDOPALEVODOPA- ENTACAPONE [Concomitant]
  23. HYDROMORPHONE [Concomitant]
     Active Substance: HYDROMORPHONE
     Dosage: AT NIGHT

REACTIONS (5)
  - Eye pain [Not Recovered/Not Resolved]
  - Eye swelling [Not Recovered/Not Resolved]
  - Ear infection [Unknown]
  - Abscess [Unknown]
  - Dizziness [Unknown]
